FAERS Safety Report 7417528-2 (Version None)
Quarter: 2011Q2

REPORT INFORMATION
  Report Type: 
  Country: None (occurrence: None)
  Receive Date: 20110412
  Receipt Date: 20110412
  Transmission Date: 20111010
  Serious: Yes (Life-Threatening, Other)
  Sender: FDA-Public Use
  Company Number: None

PATIENT
  Age: 63 Year
  Sex: Male
  Weight: 93.8946 kg

DRUGS (3)
  1. BENTYL [Suspect]
     Dosage: 1 PILL 2 X A DAY ORAL
     Route: 048
     Dates: start: 20110207, end: 20110215
  2. CIPROFLOXACIN [Suspect]
     Dosage: 1 PILL 2X A DAY ORAL
     Route: 048
     Dates: start: 20110207, end: 20110215
  3. FLAGYL [Suspect]
     Indication: DIVERTICULITIS
     Dosage: 1 PILL 2X A DAY ORAL
     Route: 048
     Dates: start: 20110207, end: 20110215

REACTIONS (7)
  - MOOD ALTERED [None]
  - CONFUSIONAL STATE [None]
  - AGITATION [None]
  - ANGER [None]
  - SUICIDAL IDEATION [None]
  - DYSPNOEA [None]
  - HEART RATE INCREASED [None]
